FAERS Safety Report 6015554-1 (Version None)
Quarter: 2008Q4

REPORT INFORMATION
  Report Type: 
  Country: None (occurrence: None)
  Receive Date: 20081218
  Receipt Date: 20081204
  Transmission Date: 20090506
  Serious: Yes (Hospitalization)
  Sender: FDA-Public Use
  Company Number: MIN-00405

PATIENT
  Age: 55 Year
  Sex: Male
  Weight: 58 kg

DRUGS (6)
  1. MINOMYCIN (MINOCYCLINE HYDROCHLORIDE; WYETH) [Suspect]
     Indication: C-REACTIVE PROTEIN INCREASED
     Dosage: 100 MG, 2X A DAY, ORAL
     Route: 048
     Dates: start: 20061006, end: 20061016
  2. MINOMYCIN (MINOCYCLINE HYDROCHLORIDE; WYETH) [Suspect]
     Indication: LUNG INFILTRATION
     Dosage: 100 MG, 2X A DAY, ORAL
     Route: 048
     Dates: start: 20061006, end: 20061016
  3. MINOMYCIN (MINOCYCLINE HYDROCHLORIDE; WYETH) [Suspect]
     Indication: WHITE BLOOD CELL COUNT INCREASED
     Dosage: 100 MG, 2X A DAY, ORAL
     Route: 048
     Dates: start: 20061006, end: 20061016
  4. LEVOFLOXACIN [Concomitant]
  5. CEFDITOREN PIVOXIL [Concomitant]
  6. IMIPENEM AND CILASTATIN SODIUM [Concomitant]

REACTIONS (4)
  - BLOOD PRESSURE INCREASED [None]
  - EOSINOPHILIC PNEUMONIA ACUTE [None]
  - LYMPHADENOPATHY MEDIASTINAL [None]
  - PLEURAL EFFUSION [None]
